FAERS Safety Report 7180509-0 (Version None)
Quarter: 2010Q4

REPORT INFORMATION
  Report Type: 
  Country: None (occurrence: None)
  Receive Date: 20101123
  Receipt Date: 20100922
  Transmission Date: 20110411
  Serious: No
  Sender: FDA-Public Use
  Company Number: 012244

PATIENT
  Sex: Female

DRUGS (2)
  1. CIMZIA [Suspect]
     Indication: CROHN'S DISEASE
     Dosage: (200 MG 1X/2 WEEKS SUBCUTANEOUS) ; (SUBCUTANEOUS)
     Route: 058
     Dates: start: 20081023
  2. PREDNISONE [Concomitant]

REACTIONS (7)
  - COLD SWEAT [None]
  - EAR PAIN [None]
  - FATIGUE [None]
  - FREQUENT BOWEL MOVEMENTS [None]
  - HYPERHIDROSIS [None]
  - OROPHARYNGEAL PAIN [None]
  - PAIN [None]
